FAERS Safety Report 9226765 (Version 1)
Quarter: 2013Q2

REPORT INFORMATION
  Report Type: Spontaneous
  Country: CO (occurrence: CO)
  Receive Date: 20130412
  Receipt Date: 20130412
  Transmission Date: 20140414
  Serious: Yes (Other)
  Sender: FDA-Public Use
  Company Number: CO-AMGEN-COLSP2013025259

PATIENT
  Age: 55 Year
  Sex: Female

DRUGS (7)
  1. ENBREL [Suspect]
     Indication: RHEUMATOID ARTHRITIS
     Dosage: 50 MG, WEEKLY
     Route: 058
     Dates: start: 2006
  2. ENBREL [Suspect]
     Dosage: 50 MG, WEEKLY
     Route: 058
     Dates: start: 201302
  3. METHOTREXATE [Concomitant]
     Indication: RHEUMATOID ARTHRITIS
     Dosage: 6 TABLETS OF 2.5MG, WEEKLY
     Route: 048
     Dates: start: 1993
  4. FOLIC ACID [Concomitant]
     Indication: RHEUMATOID ARTHRITIS
     Dosage: 1 TABLET, 1X/DAY
     Route: 048
     Dates: start: 1993
  5. ARALEN                             /00001002/ [Concomitant]
     Indication: RHEUMATOID ARTHRITIS
     Dosage: 1 TABLET, 1X/DAY
     Route: 048
     Dates: start: 1993
  6. PREDNISOLON                        /00016201/ [Concomitant]
     Indication: RHEUMATOID ARTHRITIS
     Dosage: 5 MG, 1X/DAY
     Route: 048
     Dates: start: 2003
  7. CALCITRIOL [Concomitant]
     Indication: BONE DECALCIFICATION
     Dosage: 1 TABLET, 1X/DAY
     Route: 048
     Dates: start: 2007

REACTIONS (5)
  - Retinitis pigmentosa [Unknown]
  - Glaucoma [Unknown]
  - Gastritis [Not Recovered/Not Resolved]
  - Cataract [Unknown]
  - Injection site pain [Recovered/Resolved]
